FAERS Safety Report 7545596-6 (Version None)
Quarter: 2011Q2

REPORT INFORMATION
  Report Type: 
  Country: None (occurrence: None)
  Receive Date: 20110614
  Receipt Date: 20110607
  Transmission Date: 20111010
  Serious: Yes (Death)
  Sender: FDA-Public Use
  Company Number: HU-ASTELLAS-2011EU003638

PATIENT
  Sex: Female

DRUGS (1)
  1. MYCAMINE [Suspect]
     Dosage: UNK
     Route: 065

REACTIONS (1)
  - LIVER DISORDER [None]
